FAERS Safety Report 18810906 (Version 2)
Quarter: 2021Q1

REPORT INFORMATION
  Report Type: Report from Study
  Country: MX (occurrence: MX)
  Receive Date: 20210129
  Receipt Date: 20210201
  Transmission Date: 20210419
  Serious: Yes (Death)
  Sender: FDA-Public Use
  Company Number: MX-UCBSA-2021004033

PATIENT
  Age: 0 Year
  Sex: Female
  Weight: 4.5 kg

DRUGS (5)
  1. PROTEFLOR [Concomitant]
     Indication: DYSPEPSIA
     Dosage: 1 MILLIGRAM, EV 3 DAYS
     Route: 048
     Dates: start: 201906, end: 201907
  2. EBORIX [Concomitant]
     Indication: TRISOMY 13
     Dosage: 2.5 MILLILITER, EV 3 DAYS
     Route: 048
     Dates: start: 201910, end: 20191114
  3. LEVETIRACETAM. [Suspect]
     Active Substance: LEVETIRACETAM
     Indication: TRISOMY 13
     Dosage: 100 MG/ML
     Route: 048
     Dates: start: 201903, end: 20191114
  4. LEVETIRACETAM. [Suspect]
     Active Substance: LEVETIRACETAM
     Indication: OFF LABEL USE
  5. SENSEMOC [Concomitant]
     Indication: PRODUCT USED FOR UNKNOWN INDICATION
     Dosage: UNK
     Dates: start: 201902, end: 201906

REACTIONS (5)
  - Off label use [Unknown]
  - Respiratory arrest [Fatal]
  - Dyspepsia [Not Recovered/Not Resolved]
  - Drug ineffective [Unknown]
  - Product use issue [Unknown]

NARRATIVE: CASE EVENT DATE: 2019
